FAERS Safety Report 20809359 (Version 1)
Quarter: 2022Q2

REPORT INFORMATION
  Report Type: Spontaneous
  Country: US (occurrence: None)
  Receive Date: 20220509
  Receipt Date: 20220509
  Transmission Date: 20220720
  Serious: No
  Sender: FDA-Public Use
  Company Number: None

PATIENT
  Age: 62 Year
  Sex: Female

DRUGS (1)
  1. MYCOPHENOLATE MOFETIL [Suspect]
     Active Substance: MYCOPHENOLATE MOFETIL
     Indication: Renal transplant
     Dosage: FREQUENCY : TWICE A DAY;?
     Route: 048
     Dates: start: 20201210

REACTIONS (5)
  - Sleep disorder [None]
  - Fatigue [None]
  - Abdominal pain upper [None]
  - Abdominal discomfort [None]
  - Dyspepsia [None]

NARRATIVE: CASE EVENT DATE: 20220509
